FAERS Safety Report 13782357 (Version 1)
Quarter: 2017Q3

REPORT INFORMATION
  Report Type: Spontaneous
  Country: GB (occurrence: GB)
  Receive Date: 20170724
  Receipt Date: 20170724
  Transmission Date: 20171127
  Serious: Yes (Death, Hospitalization)
  Sender: FDA-Public Use
  Company Number: GB-PFIZER INC-135652

PATIENT
  Age: 75 Year
  Sex: Female
  Weight: 54.5 kg

DRUGS (15)
  1. LISINOPRIL. [Concomitant]
     Active Substance: LISINOPRIL
  2. ALENDRONIC ACID [Concomitant]
     Active Substance: ALENDRONIC ACID
  3. BUDESONIDE. [Concomitant]
     Active Substance: BUDESONIDE
  4. SALBUTAMOL [Concomitant]
     Active Substance: ALBUTEROL
  5. PARACETAMOL [Concomitant]
     Active Substance: ACETAMINOPHEN
  6. ADCAL D3 [Concomitant]
     Active Substance: CALCIUM CARBONATE\CHOLECALCIFEROL
     Dosage: UNK
  7. GLUCOSAMINE [Concomitant]
     Active Substance: GLUCOSAMINE
  8. LANSOPRAZOLE. [Concomitant]
     Active Substance: LANSOPRAZOLE
  9. FORMOTEROL [Concomitant]
     Active Substance: FORMOTEROL
  10. METHOTREXATE SODIUM. [Suspect]
     Active Substance: METHOTREXATE SODIUM
     Indication: RHEUMATOID ARTHRITIS
     Dosage: UNK
     Route: 048
     Dates: start: 20061003, end: 20081121
  11. FERROUS SULFATE. [Concomitant]
     Active Substance: FERROUS SULFATE
  12. FOLIC ACID. [Concomitant]
     Active Substance: FOLIC ACID
  13. TRAMADOL. [Concomitant]
     Active Substance: TRAMADOL
  14. AMLODIPINE BESILATE [Concomitant]
     Active Substance: AMLODIPINE BESYLATE
  15. BENDROFLUMETHIAZIDE [Concomitant]
     Active Substance: BENDROFLUMETHIAZIDE

REACTIONS (4)
  - Sepsis [Fatal]
  - Cholestasis [Not Recovered/Not Resolved]
  - Multiple organ dysfunction syndrome [Not Recovered/Not Resolved]
  - Emphysema [Not Recovered/Not Resolved]

NARRATIVE: CASE EVENT DATE: 20081121
